FAERS Safety Report 25488725 (Version 1)
Quarter: 2025Q2

REPORT INFORMATION
  Report Type: Spontaneous
  Country: GB (occurrence: GB)
  Receive Date: 20250627
  Receipt Date: 20250627
  Transmission Date: 20250717
  Serious: Yes (Other)
  Sender: SANDOZ
  Company Number: GB-MEDICE-2025-MHF-16537

PATIENT
  Age: 17 Year
  Sex: Male
  Weight: 59 kg

DRUGS (2)
  1. METHYLPHENIDATE HYDROCHLORIDE [Suspect]
     Active Substance: METHYLPHENIDATE HYDROCHLORIDE
     Indication: Attention deficit hyperactivity disorder
     Dosage: IMMEDIATE RELEASE (IR) FORMULATION10MG MEDIKINET RETARD, WITH 2X5MG IR METHYLPHENIDATE IN THE AFTERN
     Route: 048
     Dates: start: 20250522
  2. METHYLPHENIDATE HYDROCHLORIDE [Suspect]
     Active Substance: METHYLPHENIDATE HYDROCHLORIDE
     Indication: Attention deficit hyperactivity disorder
     Dosage: 10MG MEDIKINET RETARD, WITH 2X5MG IR METHYLPHENIDATE IN THE AFTERNOON.
     Route: 048
     Dates: start: 20250522

REACTIONS (3)
  - Penile size reduced [Not Recovered/Not Resolved]
  - Contraindicated product administered [Not Recovered/Not Resolved]
  - Off label use [Not Recovered/Not Resolved]

NARRATIVE: CASE EVENT DATE: 20250522
